FAERS Safety Report 6408105-0 (Version None)
Quarter: 2009Q4

REPORT INFORMATION
  Report Type: 
  Country: None (occurrence: None)
  Receive Date: 20091021
  Receipt Date: 20091009
  Transmission Date: 20100525
  Serious: Yes (Hospitalization, Other)
  Sender: FDA-Public Use
  Company Number: US-BAYER-200913931GPV

PATIENT
  Age: 64 Year
  Sex: Female

DRUGS (2)
  1. REFLUDAN [Suspect]
     Indication: HEPARIN-INDUCED THROMBOCYTOPENIA
     Route: 065
  2. PLATELETS [Concomitant]
     Indication: HEPATIC HAEMORRHAGE
     Dosage: 6 UNITS

REACTIONS (5)
  - ABDOMINAL PAIN [None]
  - CHOLANGITIS SCLEROSING [None]
  - HEPATIC HAEMATOMA [None]
  - HEPATIC HAEMORRHAGE [None]
  - PERIRENAL HAEMATOMA [None]
